FAERS Safety Report 7940528-0 (Version None)
Quarter: 2011Q4

REPORT INFORMATION
  Report Type: 
  Country: None (occurrence: None)
  Receive Date: 20111128
  Receipt Date: 20111115
  Transmission Date: 20120403
  Serious: Yes (Other)
  Sender: FDA-Public Use
  Company Number: GB-RANBAXY-2011RR-50230

PATIENT
  Sex: Female

DRUGS (1)
  1. ETODOLAC [Suspect]
     Indication: OSTEOARTHRITIS
     Dosage: 600 MG, QD
     Route: 048
     Dates: start: 20090728

REACTIONS (1)
  - CHEST PAIN [None]
